FAERS Safety Report 26079812 (Version 1)
Quarter: 2025Q4

REPORT INFORMATION
  Report Type: Spontaneous
  Country: CN (occurrence: CN)
  Receive Date: 20251123
  Receipt Date: 20251123
  Transmission Date: 20260117
  Serious: Yes (Other)
  Sender: BEIGENE
  Company Number: CN-BEIGENE-BGN-2025-020151

PATIENT
  Age: 74 Year
  Sex: Male
  Weight: 76 kg

DRUGS (10)
  1. TISLELIZUMAB [Suspect]
     Active Substance: TISLELIZUMAB
     Indication: Gastric cancer
     Dosage: 200 MILLIGRAM, Q3WK
     Dates: start: 20251107
  2. TISLELIZUMAB [Suspect]
     Active Substance: TISLELIZUMAB
     Dosage: 200 MILLIGRAM, Q3WK
     Route: 041
     Dates: start: 20251107
  3. TISLELIZUMAB [Suspect]
     Active Substance: TISLELIZUMAB
     Dosage: 200 MILLIGRAM, Q3WK
     Route: 041
     Dates: start: 20251107
  4. TISLELIZUMAB [Suspect]
     Active Substance: TISLELIZUMAB
     Dosage: 200 MILLIGRAM, Q3WK
     Dates: start: 20251107
  5. CAPECITABINE [Suspect]
     Active Substance: CAPECITABINE
     Indication: Gastric cancer
     Dosage: 2 GRAM, D1-D14 (BID), Q3WK
     Dates: start: 20251017, end: 20251031
  6. CAPECITABINE [Suspect]
     Active Substance: CAPECITABINE
     Dosage: 2 GRAM, D1-D14 (BID), Q3WK
     Route: 048
     Dates: start: 20251017, end: 20251031
  7. CAPECITABINE [Suspect]
     Active Substance: CAPECITABINE
     Dosage: 1 GRAM, D1-D14, Q3WK
     Dates: start: 20251107
  8. CAPECITABINE [Suspect]
     Active Substance: CAPECITABINE
     Dosage: 1 GRAM, D1-D14, Q3WK
     Route: 048
     Dates: start: 20251107
  9. OXALIPLATIN [Suspect]
     Active Substance: OXALIPLATIN
     Indication: Gastric cancer
     Dosage: 180 MILLIGRAM, D1, Q3WK
     Route: 041
     Dates: start: 20251107
  10. OXALIPLATIN [Suspect]
     Active Substance: OXALIPLATIN
     Dosage: 180 MILLIGRAM, D1, Q3WK
     Dates: start: 20251107

REACTIONS (3)
  - Myelosuppression [Recovering/Resolving]
  - White blood cell count decreased [Recovering/Resolving]
  - Neutrophil count decreased [Recovering/Resolving]

NARRATIVE: CASE EVENT DATE: 20251103
